FAERS Safety Report 14776754 (Version 2)
Quarter: 2018Q2

REPORT INFORMATION
  Report Type: Spontaneous
  Country: PT (occurrence: PT)
  Receive Date: 20180419
  Receipt Date: 20180419
  Transmission Date: 20180711
  Serious: Yes (Other)
  Sender: FDA-Public Use
  Company Number: PHHY2018PT062055

PATIENT
  Age: 6 Year
  Sex: Female

DRUGS (2)
  1. VINBLASTINE [Suspect]
     Active Substance: VINBLASTINE
     Indication: LANGERHANS^ CELL HISTIOCYTOSIS
     Dosage: UNK, CYCLIC
     Route: 065
  2. PREDNISOLONE. [Suspect]
     Active Substance: PREDNISOLONE
     Indication: LANGERHANS^ CELL HISTIOCYTOSIS
     Dosage: UNK, CYCLIC
     Route: 065

REACTIONS (3)
  - Product use in unapproved indication [Unknown]
  - Posterior reversible encephalopathy syndrome [Unknown]
  - Neutropenic colitis [Unknown]
